FAERS Safety Report 18233830 (Version 1)
Quarter: 2020Q3

REPORT INFORMATION
  Report Type: Spontaneous
  Country: US (occurrence: US)
  Receive Date: 20200904
  Receipt Date: 20200904
  Transmission Date: 20201103
  Serious: No
  Sender: FDA-Public Use
  Company Number: US-GLAXOSMITHKLINE-US2020AMR175219

PATIENT
  Age: 53 Year
  Sex: Female
  Weight: 79.38 kg

DRUGS (1)
  1. NICODERM CQ [Suspect]
     Active Substance: NICOTINE
     Indication: PRODUCT USED FOR UNKNOWN INDICATION
     Dosage: UNK

REACTIONS (4)
  - Application site irritation [Unknown]
  - Application site pruritus [Unknown]
  - Application site burn [Unknown]
  - Application site pain [Unknown]

NARRATIVE: CASE EVENT DATE: 202008
